FAERS Safety Report 13167036 (Version 1)
Quarter: 2017Q1

REPORT INFORMATION
  Report Type: Spontaneous
  Country: US (occurrence: US)
  Receive Date: 20170130
  Receipt Date: 20170130
  Transmission Date: 20170428
  Serious: Yes (Death, Life-Threatening, Hospitalization)
  Sender: FDA-Public Use
  Company Number: None

PATIENT
  Age: 67 Year
  Sex: Male
  Weight: 96.1 kg

DRUGS (1)
  1. ACTIVASE [Suspect]
     Active Substance: ALTEPLASE
     Indication: ISCHAEMIC STROKE
     Dosage: ?          OTHER FREQUENCY:1X ONLY;?
     Route: 042
     Dates: start: 20161130, end: 20161130

REACTIONS (6)
  - Headache [None]
  - Blood pressure increased [None]
  - Cerebral haemorrhage [None]
  - Confusional state [None]
  - Dysarthria [None]
  - Aphasia [None]

NARRATIVE: CASE EVENT DATE: 20161130
